FAERS Safety Report 4342721-5 (Version None)
Quarter: 2004Q2

REPORT INFORMATION
  Report Type: 
  Country: None (occurrence: None)
  Receive Date: 20040416
  Receipt Date: 20040409
  Transmission Date: 20050107
  Serious: Yes (Death, Hospitalization)
  Sender: FDA-Public Use
  Company Number: 2003AP03109

PATIENT
  Age: 49 Year
  Sex: Female
  Weight: 65 kg

DRUGS (19)
  1. IRESSA [Suspect]
     Indication: LUNG ADENOCARCINOMA
     Dosage: 250 MG DAILY PO
     Route: 048
     Dates: start: 20030128, end: 20030626
  2. IRESSA [Suspect]
     Indication: NON-SMALL CELL LUNG CANCER
     Dosage: 250 MG DAILY PO
     Route: 048
     Dates: start: 20030128, end: 20030626
  3. IRESSA [Suspect]
     Indication: LUNG ADENOCARCINOMA
     Dosage: 250 MG DAILY PO
     Route: 048
     Dates: start: 20030804, end: 20030901
  4. IRESSA [Suspect]
     Indication: NON-SMALL CELL LUNG CANCER
     Dosage: 250 MG DAILY PO
     Route: 048
     Dates: start: 20030804, end: 20030901
  5. VINORELBINE TARTRATE [Concomitant]
  6. CISPLATIN [Concomitant]
  7. GEMZAR [Concomitant]
  8. TAXOL [Concomitant]
  9. METHYRON [Concomitant]
  10. CAMPTOSAR [Concomitant]
  11. MEPTIN [Concomitant]
  12. OXYCONTIN [Concomitant]
  13. ALLEGRA [Concomitant]
  14. CALCITE [Concomitant]
  15. MUCOSTA [Concomitant]
  16. ULCERMIN [Concomitant]
  17. PARIET [Concomitant]
  18. ALGIRON [Concomitant]
  19. ROMANTASE [Concomitant]

REACTIONS (7)
  - BRONCHIECTASIS [None]
  - CHEST DISCOMFORT [None]
  - DISEASE PROGRESSION [None]
  - DISEASE RECURRENCE [None]
  - INTERSTITIAL LUNG DISEASE [None]
  - LUNG CONSOLIDATION [None]
  - LUNG NEOPLASM [None]
